FAERS Safety Report 6506456-2 (Version None)
Quarter: 2009Q4

REPORT INFORMATION
  Report Type: 
  Country: None (occurrence: None)
  Receive Date: 20091221
  Receipt Date: 20091209
  Transmission Date: 20100525
  Serious: Yes (Other)
  Sender: FDA-Public Use
  Company Number: US-BIOGENIDEC-2009BI040451

PATIENT
  Age: 37 Year
  Sex: Female

DRUGS (1)
  1. TYSABRI [Suspect]
     Indication: MULTIPLE SCLEROSIS
     Route: 042
     Dates: start: 20080115, end: 20090720

REACTIONS (6)
  - DEHYDRATION [None]
  - FALL [None]
  - MULTIPLE SCLEROSIS [None]
  - POOR VENOUS ACCESS [None]
  - SEPSIS [None]
  - THYROID NEOPLASM [None]
